FAERS Safety Report 25863449 (Version 1)
Quarter: 2025Q3

REPORT INFORMATION
  Report Type: Spontaneous
  Country: GB (occurrence: GB)
  Receive Date: 20250930
  Receipt Date: 20250930
  Transmission Date: 20251021
  Serious: Yes (Other)
  Sender: RANBAXY
  Company Number: GB-SUN PHARMACEUTICAL INDUSTRIES INC-2025RR-528975

PATIENT
  Age: 72 Year
  Sex: Female
  Weight: 64 kg

DRUGS (1)
  1. LEVETIRACETAM [Suspect]
     Active Substance: LEVETIRACETAM
     Indication: Adverse drug reaction
     Route: 065
     Dates: start: 20250724

REACTIONS (1)
  - Hypomania [Recovering/Resolving]

NARRATIVE: CASE EVENT DATE: 20250901
